FAERS Safety Report 18722232 (Version 2)
Quarter: 2021Q1

REPORT INFORMATION
  Report Type: Spontaneous
  Country: IN (occurrence: IN)
  Receive Date: 20210111
  Receipt Date: 20210127
  Transmission Date: 20210419
  Serious: Yes (Other)
  Sender: FDA-Public Use
  Company Number: IN-CIPLA LTD.-2021IN00021

PATIENT

DRUGS (3)
  1. ASTHALIN [SALBUTAMOL] [Suspect]
     Active Substance: ALBUTEROL
     Indication: ASTHMA
     Dosage: UNK, PRN (AS PER REQUIREMENT)
  2. ASTHALIN [SALBUTAMOL] [Suspect]
     Active Substance: ALBUTEROL
     Indication: ASTHMA
     Dosage: 2?3 CAPSULES, AS NEEDED, SINCE 10 YEARS
     Route: 065
  3. ASTHALIN [SALBUTAMOL] [Suspect]
     Active Substance: ALBUTEROL
     Dosage: 2 DOSES, BID (TWICE DAILY), 5?6 TO MONTHS AGO
     Dates: start: 2020

REACTIONS (7)
  - Asphyxia [Not Recovered/Not Resolved]
  - Drug ineffective [Not Recovered/Not Resolved]
  - Dysgeusia [Not Recovered/Not Resolved]
  - Scar [Unknown]
  - Incorrect dose administered [Unknown]
  - Rash [Unknown]
  - Suspected counterfeit product [Unknown]

NARRATIVE: CASE EVENT DATE: 2020
